FAERS Safety Report 18724819 (Version 1)
Quarter: 2021Q1

REPORT INFORMATION
  Report Type: Spontaneous
  Country: US (occurrence: US)
  Receive Date: 20210111
  Receipt Date: 20210111
  Transmission Date: 20210419
  Serious: Yes (Death, Hospitalization, Other)
  Sender: FDA-Public Use
  Company Number: US-PFIZER INC-2021014212

PATIENT
  Age: 23 Year
  Sex: Female

DRUGS (8)
  1. ALPRAZOLAM. [Suspect]
     Active Substance: ALPRAZOLAM
     Dosage: UNK (INGST)
     Route: 048
  2. FLUOXETINE [Suspect]
     Active Substance: FLUOXETINE HYDROCHLORIDE
     Dosage: UNK (INGST)
     Route: 048
  3. BENZATROPINE [Suspect]
     Active Substance: BENZTROPINE
     Dosage: UNK (INGST)
     Route: 048
  4. BUPRENORPHINE/NALOXONE [Suspect]
     Active Substance: BUPRENORPHINE\NALOXONE
     Dosage: SUBLINGUAL FILM (INGST)
     Route: 048
  5. RISPERIDONE. [Suspect]
     Active Substance: RISPERIDONE
     Dosage: UNK (INGST)
     Route: 048
  6. HEROIN [Suspect]
     Active Substance: DIAMORPHINE
     Dosage: UNK (INGST)
     Route: 048
  7. METHYLENEDIOXYMETHAMPHETAMINE [Suspect]
     Active Substance: MIDOMAFETAMINE
     Dosage: UNK (INGST)
     Route: 048
  8. GABAPENTIN. [Suspect]
     Active Substance: GABAPENTIN
     Dosage: UNK (INGST)
     Route: 048

REACTIONS (3)
  - Respiratory arrest [Fatal]
  - Cardiac arrest [Fatal]
  - Suspected suicide [Fatal]

NARRATIVE: CASE EVENT DATE: 2019
